FAERS Safety Report 5395239-5 (Version None)
Quarter: 2007Q3

REPORT INFORMATION
  Report Type: 
  Country: None (occurrence: None)
  Receive Date: 20070724
  Receipt Date: 20070530
  Transmission Date: 20080115
  Serious: Yes (Other)
  Sender: FDA-Public Use
  Company Number: US-PURDUE-USA_2007_0027726

PATIENT
  Sex: Male

DRUGS (5)
  1. OXYCONTIN [Suspect]
     Indication: PAIN
     Dosage: 40 MG, BID
     Dates: start: 19990527, end: 20021025
  2. OXYIR CAPSULES 5 MG [Concomitant]
     Indication: DRUG USE FOR UNKNOWN INDICATION
     Dosage: 5 MG, TID
  3. NEURONTIN [Concomitant]
     Dosage: 400 MG, TID
  4. FLEXERIL [Concomitant]
     Dosage: 10 MG, BID
  5. PROZAC [Concomitant]
     Dosage: 20 MG, DAILY

REACTIONS (14)
  - AGGRESSION [None]
  - ANGER [None]
  - ANHEDONIA [None]
  - ANXIETY [None]
  - DEPRESSED MOOD [None]
  - DEPRESSION [None]
  - DRUG DEPENDENCE [None]
  - DRUG WITHDRAWAL SYNDROME [None]
  - IMPULSIVE BEHAVIOUR [None]
  - INSOMNIA [None]
  - LIVER DISORDER [None]
  - MENTAL DISORDER [None]
  - SLEEP DISORDER [None]
  - SOCIAL AVOIDANT BEHAVIOUR [None]
